FAERS Safety Report 11079871 (Version 2)
Quarter: 2015Q2

REPORT INFORMATION
  Report Type: Spontaneous
  Country: FR (occurrence: FR)
  Receive Date: 20150430
  Receipt Date: 20150513
  Transmission Date: 20150821
  Serious: Yes (Death, Hospitalization, Other)
  Sender: FDA-Public Use
  Company Number: FR-BAYER-2015-158209

PATIENT
  Age: 20 Day
  Sex: Male
  Weight: 4.3 kg

DRUGS (7)
  1. AMIKLIN [Concomitant]
     Active Substance: AMIKACIN SULFATE
  2. CIFLOX [Suspect]
     Active Substance: CIPROFLOXACIN
     Indication: MENINGITIS BACTERIAL
  3. CIFLOX [Suspect]
     Active Substance: CIPROFLOXACIN
     Indication: ESCHERICHIA INFECTION
     Dosage: 500 MG/5 ML
     Route: 048
     Dates: start: 20140225, end: 20140308
  4. GARDENAL [Concomitant]
     Active Substance: PHENOBARBITAL
  5. VALIUM [DIAZEPAM] [Concomitant]
     Dosage: 2 MG, UNK
  6. CLAFORAN [Concomitant]
     Active Substance: CEFOTAXIME SODIUM
     Dosage: UNK
     Route: 042
     Dates: start: 20140225, end: 20140308
  7. CLAMOXYL [AMOXICILLIN] [Concomitant]

REACTIONS (7)
  - Brain injury [Fatal]
  - Product packaging confusion [None]
  - Drug administered to patient of inappropriate age [None]
  - Vasculitis cerebral [None]
  - Drug dispensing error [Recovered/Resolved]
  - Drug ineffective [None]
  - Cerebral venous thrombosis [Fatal]
